FAERS Safety Report 4403442-3 (Version None)
Quarter: 2004Q3

REPORT INFORMATION
  Report Type: 
  Country: None (occurrence: None)
  Receive Date: 20040720
  Receipt Date: 20040712
  Transmission Date: 20050211
  Serious: Yes (Other)
  Sender: FDA-Public Use
  Company Number: HQWYE583622JUN04

PATIENT
  Age: 65 Year
  Sex: Female
  Weight: 74.91 kg

DRUGS (8)
  1. EFFEXOR [Suspect]
     Indication: DEPRESSION
     Dosage: 75 MG 2X PER 1 DAY, ORAL; 37.5 MG 2X PER 1 DAY, ORAL 18.75 MG 2X PER 1 DAY, ORAL
     Route: 048
     Dates: start: 19990101, end: 20040101
  2. EFFEXOR [Suspect]
     Indication: DEPRESSION
     Dosage: 75 MG 2X PER 1 DAY, ORAL; 37.5 MG 2X PER 1 DAY, ORAL 18.75 MG 2X PER 1 DAY, ORAL
     Route: 048
     Dates: start: 20040101, end: 20040201
  3. EFFEXOR [Suspect]
     Indication: DEPRESSION
     Dosage: 75 MG 2X PER 1 DAY, ORAL; 37.5 MG 2X PER 1 DAY, ORAL 18.75 MG 2X PER 1 DAY, ORAL
     Route: 048
     Dates: start: 20040201
  4. METFORMIN HCL [Concomitant]
  5. AVANDIA [Concomitant]
  6. TRICOR [Concomitant]
  7. ACCUPRIL [Concomitant]
  8. SYNTHROID [Concomitant]

REACTIONS (5)
  - AGGRESSION [None]
  - ANGER [None]
  - DRUG WITHDRAWAL SYNDROME [None]
  - HOMICIDAL IDEATION [None]
  - PHYSICAL ASSAULT [None]
